FAERS Safety Report 4954571-7 (Version None)
Quarter: 2006Q1

REPORT INFORMATION
  Report Type: 
  Country: None (occurrence: None)
  Receive Date: 20060322
  Receipt Date: 20060306
  Transmission Date: 20060701
  Serious: Yes (Other)
  Sender: FDA-Public Use
  Company Number: 2006BL001260

PATIENT
  Age: 61 Year
  Sex: Female

DRUGS (2)
  1. PREDNI-OPTHAL GEL (PREDNISOLONE ACETATE) [Suspect]
     Indication: TRABECULECTOMY
     Dosage: 4 TIMES A DAY; OPTHALMIC
     Route: 047
     Dates: start: 20030101
  2. CHLORAMPHENICOL [Concomitant]

REACTIONS (2)
  - NASAL SEPTUM PERFORATION [None]
  - THERAPEUTIC RESPONSE UNEXPECTED [None]
